FAERS Safety Report 8929916 (Version 1)
Quarter: 2012Q4

REPORT INFORMATION
  Report Type: 
  Country: US (occurrence: US)
  Receive Date: 20121128
  Receipt Date: 20121128
  Transmission Date: 20130627
  Serious: Yes (Other)
  Sender: FDA-Public Use
  Company Number: US-SHIRE-ALL1-2012-05725

PATIENT
  Sex: Female
  Weight: 58.96 kg

DRUGS (2)
  1. AMPHETAMINE SALTS [Suspect]
     Indication: ATTENTION DEFICIT/HYPERACTIVITY DISORDER
     Dosage: 30 mg, Other(on and off)
     Route: 048
     Dates: end: 20121113
  2. WELLBUTRIN [Suspect]
     Indication: DEPRESSION
     Dosage: 150 mg, 1x/day:qd
     Route: 048

REACTIONS (11)
  - Depression [Unknown]
  - Stomatitis [Unknown]
  - Hypersomnia [Unknown]
  - Hyperphagia [Unknown]
  - Dysgeusia [Unknown]
  - Asthenia [Unknown]
  - Fatigue [Recovered/Resolved]
  - Anxiety [Recovered/Resolved]
  - Abdominal discomfort [Recovered/Resolved]
  - Inappropriate schedule of drug administration [Recovered/Resolved]
  - Off label use [Recovered/Resolved]
